FAERS Safety Report 14766818 (Version 6)
Quarter: 2021Q3

REPORT INFORMATION
  Report Type: Other
  Country: CA (occurrence: CA)
  Receive Date: 20180417
  Receipt Date: 20210820
  Transmission Date: 20211014
  Serious: Yes (Other)
  Sender: FDA-Public Use
  Company Number: CA-ROCHE-ITM201503IM012833

PATIENT
  Age: 59 Year
  Sex: Female
  Weight: 56 kg

DRUGS (20)
  1. ESBRIET [Suspect]
     Active Substance: PIRFENIDONE
     Route: 048
     Dates: start: 20160604
  2. CARBOCAL [Concomitant]
     Active Substance: CALCIUM CARBONATE
  3. HCTZ [Concomitant]
     Active Substance: HYDROCHLOROTHIAZIDE
  4. ATIVAN [Concomitant]
     Active Substance: LORAZEPAM
  5. ESBRIET [Suspect]
     Active Substance: PIRFENIDONE
     Route: 048
  6. NEXIUM [Concomitant]
     Active Substance: ESOMEPRAZOLE MAGNESIUM
  7. PREDNISONE. [Concomitant]
     Active Substance: PREDNISONE
  8. ESBRIET [Suspect]
     Active Substance: PIRFENIDONE
     Indication: IDIOPATHIC PULMONARY FIBROSIS
     Dosage: STRENGTH 2403
     Route: 048
     Dates: start: 20140521, end: 20140527
  9. ESBRIET [Suspect]
     Active Substance: PIRFENIDONE
     Route: 048
     Dates: start: 20140604
  10. HYDROCHLOROTHIAZIDE. [Concomitant]
     Active Substance: HYDROCHLOROTHIAZIDE
  11. ESBRIET [Suspect]
     Active Substance: PIRFENIDONE
     Route: 048
     Dates: start: 20160528
  12. HERCEPTIN [Suspect]
     Active Substance: TRASTUZUMAB
     Indication: BREAST CANCER
     Route: 065
  13. BIAXIN [Concomitant]
     Active Substance: CLARITHROMYCIN
  14. AZATHIOPRINE. [Concomitant]
     Active Substance: AZATHIOPRINE
  15. ESBRIET [Suspect]
     Active Substance: PIRFENIDONE
     Route: 048
     Dates: start: 20140528, end: 20140603
  16. RISEDRONATE [Concomitant]
     Active Substance: RISEDRONATE SODIUM
  17. FERROUS SULFATE. [Concomitant]
     Active Substance: FERROUS SULFATE
  18. TAMOXIFEN [Concomitant]
     Active Substance: TAMOXIFEN
  19. ESBRIET [Suspect]
     Active Substance: PIRFENIDONE
     Route: 048
  20. ESOMEPRAZOLE. [Concomitant]
     Active Substance: ESOMEPRAZOLE MAGNESIUM

REACTIONS (23)
  - Aortic dilatation [Unknown]
  - Pulmonary function test abnormal [Unknown]
  - Hot flush [Unknown]
  - Dry skin [Recovering/Resolving]
  - Synovial cyst [Unknown]
  - Lung diffusion test decreased [Unknown]
  - Rash erythematous [Unknown]
  - Nasopharyngitis [Not Recovered/Not Resolved]
  - Productive cough [Not Recovered/Not Resolved]
  - Hyperhidrosis [Unknown]
  - Cushingoid [Unknown]
  - Organising pneumonia [Unknown]
  - Nausea [Unknown]
  - Skin exfoliation [Recovering/Resolving]
  - Weight decreased [Unknown]
  - Fatigue [Not Recovered/Not Resolved]
  - Nausea [Unknown]
  - Pulmonary hypertension [Unknown]
  - Erythema [Recovering/Resolving]
  - Oxygen saturation decreased [Unknown]
  - Middle insomnia [Not Recovered/Not Resolved]
  - Sleep disorder [Not Recovered/Not Resolved]
  - Diarrhoea [Not Recovered/Not Resolved]

NARRATIVE: CASE EVENT DATE: 20140524
